FAERS Safety Report 5081208-1 (Version None)
Quarter: 2006Q3

REPORT INFORMATION
  Report Type: 
  Country: None (occurrence: None)
  Receive Date: 20060810
  Receipt Date: 20060803
  Transmission Date: 20061208
  Serious: Yes (Death)
  Sender: FDA-Public Use
  Company Number: 2006-165

PATIENT
  Age: 52 Year
  Sex: Female

DRUGS (2)
  1. CARBOPLATIN [Suspect]
     Indication: OVARIAN CANCER METASTATIC
  2. PACLITAXEL [Suspect]
     Indication: OVARIAN CANCER METASTATIC

REACTIONS (15)
  - BICYTOPENIA [None]
  - CYTOGENETIC ANALYSIS ABNORMAL [None]
  - ERYTHROLEUKAEMIA [None]
  - FEBRILE NEUTROPENIA [None]
  - HAEMOGLOBIN DECREASED [None]
  - HAEMORRHAGE INTRACRANIAL [None]
  - LEIOMYOSARCOMA [None]
  - MONOCYTE PERCENTAGE INCREASED [None]
  - NEOPLASM RECURRENCE [None]
  - OVARIAN CANCER METASTATIC [None]
  - PNEUMONIA [None]
  - PNEUMONITIS [None]
  - STEM CELL TRANSPLANT [None]
  - TRANSPLANT REJECTION [None]
  - TREATMENT RELATED SECONDARY MALIGNANCY [None]
